FAERS Safety Report 9269283 (Version 2)
Quarter: 2013Q2

REPORT INFORMATION
  Report Type: Spontaneous
  Country: DE (occurrence: DE)
  Receive Date: 20130503
  Receipt Date: 20130618
  Transmission Date: 20140414
  Serious: Yes (Other)
  Sender: FDA-Public Use
  Company Number: DE-BAUSCH-BL-2013-002457

PATIENT
  Sex: Female

DRUGS (1)
  1. LATAN-OPHTAL [Suspect]
     Indication: GLAUCOMA
     Route: 047
     Dates: start: 201304, end: 201304

REACTIONS (1)
  - Drug ineffective [Unknown]
